FAERS Safety Report 5652924-5 (Version None)
Quarter: 2008Q1

REPORT INFORMATION
  Report Type: 
  Country: None (occurrence: None)
  Receive Date: 20080306
  Receipt Date: 20080227
  Transmission Date: 20080703
  Serious: Yes (Hospitalization)
  Sender: FDA-Public Use
  Company Number: JP-BAYER-200810362BYL

PATIENT
  Age: 40 Year
  Sex: Male

DRUGS (1)
  1. ASPIRIN [Suspect]
     Route: 048

REACTIONS (3)
  - COMPARTMENT SYNDROME [None]
  - MUSCLE HAEMORRHAGE [None]
  - MUSCLE NECROSIS [None]
